FAERS Safety Report 6989529-X (Version None)
Quarter: 2010Q3

REPORT INFORMATION
  Report Type: 
  Country: None (occurrence: None)
  Receive Date: 20100916
  Receipt Date: 20100913
  Transmission Date: 20110219
  Serious: Yes (Other)
  Sender: FDA-Public Use
  Company Number: US-GILEAD-2010-0031797

PATIENT

DRUGS (2)
  1. LETAIRIS [Suspect]
     Indication: PULMONARY ARTERIAL HYPERTENSION
  2. MULTAQ [Concomitant]
     Indication: ARRHYTHMIA PROPHYLAXIS

REACTIONS (1)
  - ALANINE AMINOTRANSFERASE INCREASED [None]
